FAERS Safety Report 6368714-4 (Version None)
Quarter: 2009Q3

REPORT INFORMATION
  Report Type: 
  Country: None (occurrence: None)
  Receive Date: 20090916
  Receipt Date: 20090827
  Transmission Date: 20100115
  Serious: Yes (Death)
  Sender: FDA-Public Use
  Company Number: APP200900350

PATIENT
  Age: 62 Year
  Sex: Male
  Weight: 93 kg

DRUGS (10)
  1. HEPARIN SODIUM INJECTION [Suspect]
     Indication: ANTICOAGULANT THERAPY
     Dosage: 40000 USP UNITS, ONCE INTRAVENOUS
     Route: 042
     Dates: start: 20090622, end: 20090622
  2. HEPARIN SODIUM INJECTION [Suspect]
     Indication: ANTICOAGULANT THERAPY
     Dosage: 40000 USP UNITS, ONCE INTRAVENOUS
     Route: 042
     Dates: start: 20090622, end: 20090622
  3. PROTAMINE SULFATE [Suspect]
     Indication: HEPARIN NEUTRALISATION THERAPY
     Dosage: INTRAVENOUS
     Route: 042
     Dates: start: 20090622, end: 20090622
  4. HEPARIN SODIUM INJECTION [Suspect]
  5. HEPARIN SODIUM INJECTION [Suspect]
  6. HEPARIN SODIUM INJECTION [Suspect]
  7. HEPARIN SODIUM INJECTION [Suspect]
  8. PROTAMINE SULFATE [Suspect]
  9. PROTAMINE SULFATE [Suspect]
  10. PROTAMINE SULFATE [Suspect]

REACTIONS (6)
  - CARDIO-RESPIRATORY ARREST [None]
  - DISSEMINATED INTRAVASCULAR COAGULATION [None]
  - OPERATIVE HAEMORRHAGE [None]
  - PRODUCT MEASURED POTENCY ISSUE [None]
  - VENTRICULAR FAILURE [None]
  - VENTRICULAR TACHYCARDIA [None]
